FAERS Safety Report 7194238-0 (Version None)
Quarter: 2010Q4

REPORT INFORMATION
  Report Type: 
  Country: None (occurrence: None)
  Receive Date: 20101223
  Receipt Date: 20101213
  Transmission Date: 20110411
  Serious: Yes (Other)
  Sender: FDA-Public Use
  Company Number: SI-ELI_LILLY_AND_COMPANY-SI201012003819

PATIENT
  Age: 77 Year
  Sex: Male

DRUGS (2)
  1. GEMZAR [Suspect]
     Dosage: 1000 MG/M2, ON DAYS1+8 EVERY THREE WEEKS
     Route: 065
  2. CISPLATIN [Suspect]
     Dosage: 75 MG/M2, ON DAYS 1

REACTIONS (6)
  - FEMORAL ARTERY OCCLUSION [None]
  - NECROSIS [None]
  - PERIPHERAL ARTERIAL OCCLUSIVE DISEASE [None]
  - PERIPHERAL ISCHAEMIA [None]
  - THROMBOCYTOSIS [None]
  - WOUND INFECTION [None]
